FAERS Safety Report 25204729 (Version 1)
Quarter: 2025Q2

REPORT INFORMATION
  Report Type: Spontaneous
  Country: JP (occurrence: JP)
  Receive Date: 20250416
  Receipt Date: 20250416
  Transmission Date: 20250716
  Serious: Yes (Other)
  Sender: ALEXION PHARMACEUTICALS
  Company Number: JP-ASTRAZENECA-250035292_030330_P_1

PATIENT

DRUGS (4)
  1. PULMICORT TURBUHALER [Suspect]
     Active Substance: BUDESONIDE
     Indication: Cough variant asthma
     Dosage: 2 DOSAGE FORM, BID, IN THE MORNING AND EVENING
  2. MAGNESIUM OXIDE [Concomitant]
     Active Substance: MAGNESIUM OXIDE
  3. ALLOID G [Concomitant]
     Active Substance: SODIUM ALGINATE
  4. UNSPECIFIED INGREDIENT [Concomitant]
     Active Substance: UNSPECIFIED INGREDIENT

REACTIONS (6)
  - Tachycardia [Unknown]
  - Palpitations [Unknown]
  - Nausea [Unknown]
  - Cough [Recovering/Resolving]
  - Off label use [Unknown]
  - Arrhythmia [Unknown]
